FAERS Safety Report 13703862 (Version 4)
Quarter: 2017Q3

REPORT INFORMATION
  Report Type: Report from Study
  Country: JP (occurrence: JP)
  Receive Date: 20170629
  Receipt Date: 20170928
  Transmission Date: 20171127
  Serious: Yes (Hospitalization, Other)
  Sender: FDA-Public Use
  Company Number: JP-GILEAD-2017-0279987

PATIENT
  Age: 48 Year
  Sex: Male

DRUGS (16)
  1. EMTRICITABINE/TENOFOVIR DISOPROXIL FUMARATE [Suspect]
     Active Substance: EMTRICITABINE\TENOFOVIR DISOPROXIL FUMARATE
     Indication: HIV INFECTION
     Dosage: 1 DF, QD
     Route: 048
     Dates: start: 20100728, end: 20170328
  2. SANCOBA [Concomitant]
     Active Substance: CYANOCOBALAMIN
     Indication: DRY EYE
     Dosage: UNK UNKNOWN, TID
     Route: 047
     Dates: start: 20100928
  3. ALDACTONE A [Concomitant]
     Active Substance: SPIRONOLACTONE
     Indication: CARDIAC FAILURE
     Route: 065
     Dates: start: 20160401
  4. LASIX [Concomitant]
     Active Substance: FUROSEMIDE
     Indication: CARDIAC FAILURE
     Route: 065
     Dates: start: 20160401
  5. LAMISIL [Concomitant]
     Active Substance: TERBINAFINE HYDROCHLORIDE
     Indication: TINEA INFECTION
     Dosage: 125 MG, QD
     Route: 048
     Dates: start: 20130306, end: 20130320
  6. KAKKONTO                           /07985901/ [Concomitant]
     Active Substance: HERBALS
     Indication: FEELING COLD
     Route: 048
     Dates: start: 20100401, end: 20130404
  7. CRAVIT [Concomitant]
     Active Substance: LEVOFLOXACIN
     Indication: DRY EYE
     Dosage: UNK UNKNOWN, QID
     Route: 047
     Dates: start: 20100401
  8. HACHIMIJIOGAN [Concomitant]
     Active Substance: HERBALS
     Indication: PROSTATITIS
     Route: 048
     Dates: start: 20100608, end: 20120731
  9. RENIVACE [Concomitant]
     Active Substance: ENALAPRIL
     Indication: CARDIAC FAILURE
     Route: 065
     Dates: start: 20160401
  10. MYSLEE [Concomitant]
     Active Substance: ZOLPIDEM TARTRATE
     Indication: INSOMNIA
     Route: 048
     Dates: start: 20100401
  11. ARTIST [Concomitant]
     Active Substance: CARVEDILOL
     Indication: CARDIAC FAILURE
     Route: 065
     Dates: start: 20160401
  12. ZYLORIC [Concomitant]
     Active Substance: ALLOPURINOL
     Indication: HYPERURICAEMIA
     Route: 048
     Dates: start: 20100401
  13. ISENTRESS [Suspect]
     Active Substance: RALTEGRAVIR POTASSIUM
     Indication: HIV INFECTION
     Dosage: 800 MG, QD
     Route: 048
     Dates: start: 20100728
  14. LENDORMIN [Concomitant]
     Active Substance: BROTIZOLAM
     Indication: INSOMNIA
     Route: 048
     Dates: start: 20100401
  15. KAKKONTO                           /07985901/ [Concomitant]
     Active Substance: HERBALS
     Dosage: 2.5 G, TID
     Route: 048
     Dates: start: 20131119, end: 20140314
  16. HYALEIN [Concomitant]
     Active Substance: HYALURONATE SODIUM
     Indication: DRY EYE
     Dosage: UNK UNKNOWN, TID
     Route: 047
     Dates: start: 20100401

REACTIONS (5)
  - Type 2 diabetes mellitus [Not Recovered/Not Resolved]
  - Hyperlipidaemia [Recovering/Resolving]
  - Myocarditis [Not Recovered/Not Resolved]
  - Small intestine carcinoma [Recovering/Resolving]
  - Hepatic function abnormal [Not Recovered/Not Resolved]

NARRATIVE: CASE EVENT DATE: 20060405
